FAERS Safety Report 7903466-5 (Version None)
Quarter: 2011Q4

REPORT INFORMATION
  Report Type: 
  Country: None (occurrence: None)
  Receive Date: 20111108
  Receipt Date: 20111108
  Transmission Date: 20120403
  Serious: No
  Sender: FDA-Public Use
  Company Number: None

PATIENT
  Sex: Female

DRUGS (2)
  1. SEROQUEL [Concomitant]
  2. LAMICTAL [Suspect]
     Dosage: AS ABOVE 296

REACTIONS (1)
  - NERVOUS SYSTEM DISORDER [None]
